FAERS Safety Report 20709667 (Version 7)
Quarter: 2025Q3

REPORT INFORMATION
  Report Type: Report from Study
  Country: GB (occurrence: GB)
  Receive Date: 20220414
  Receipt Date: 20250714
  Transmission Date: 20251020
  Serious: Yes (Other)
  Sender: UCB
  Company Number: GB-UCBSA-2022020452

PATIENT
  Sex: Male

DRUGS (2)
  1. CERTOLIZUMAB PEGOL [Suspect]
     Active Substance: CERTOLIZUMAB PEGOL
     Indication: Rheumatoid arthritis
     Dosage: 200 MILLIGRAM, EV 2 WEEKS(QOW)
     Route: 058
  2. CERTOLIZUMAB PEGOL [Suspect]
     Active Substance: CERTOLIZUMAB PEGOL
     Indication: Rheumatoid arthritis
     Dosage: 200 MILLIGRAM, EV 2 WEEKS(QOW)
     Route: 058

REACTIONS (10)
  - Cerebrovascular accident [Unknown]
  - Visual impairment [Unknown]
  - Crying [Unknown]
  - Palpitations [Unknown]
  - Illness [Unknown]
  - Stress [Unknown]
  - Speech disorder [Not Recovered/Not Resolved]
  - Irritability [Unknown]
  - Product distribution issue [Unknown]
  - Product prescribing issue [Unknown]
